FAERS Safety Report 6566192-3 (Version None)
Quarter: 2010Q1

REPORT INFORMATION
  Report Type: 
  Country: None (occurrence: None)
  Receive Date: 20100202
  Receipt Date: 20100120
  Transmission Date: 20100710
  Serious: Yes (Other)
  Sender: FDA-Public Use
  Company Number: US-PFIZER INC-2010011767

PATIENT

DRUGS (2)
  1. GEODON [Suspect]
     Dosage: FREQUENCY: 2X/DAY,
     Route: 048
  2. SINEMET [Suspect]

REACTIONS (1)
  - PARKINSON'S DISEASE [None]
